FAERS Safety Report 7382867-0 (Version None)
Quarter: 2011Q1

REPORT INFORMATION
  Report Type: 
  Country: None (occurrence: None)
  Receive Date: 20110330
  Receipt Date: 20101001
  Transmission Date: 20110831
  Serious: Yes (Hospitalization, Other)
  Sender: FDA-Public Use
  Company Number: US-BAYER-201030272NA

PATIENT
  Sex: Female
  Weight: 77.098 kg

DRUGS (9)
  1. PHENERGAN [Concomitant]
     Dosage: 12.5 MG, QID
  2. BACTRIM [Concomitant]
     Dosage: UNK
     Dates: start: 20080401, end: 20090701
  3. YAZ [Suspect]
     Indication: PRODUCT USED FOR UNKNOWN INDICATION
     Route: 048
     Dates: start: 20081213
  4. IBUPROFEN [Concomitant]
     Dosage: 600 MG, QID
  5. DRYSOL [ALUMINIUM CHLORIDE] [Concomitant]
  6. ZYRTEC-D 12 HOUR [Concomitant]
     Dosage: UNK UNK, PRN
  7. EXCEDRIN (MIGRAINE) [Concomitant]
     Dosage: UNK UNK, PRN
  8. PREMARIN [Concomitant]
     Indication: MIGRAINE
     Dosage: 3-5 TIMES/MONTH
     Dates: start: 20090701, end: 20090801
  9. BACTRIM [Concomitant]
     Indication: ACNE
     Dosage: UNK
     Dates: start: 20060101

REACTIONS (5)
  - PULMONARY EMBOLISM [None]
  - RENAL FAILURE ACUTE [None]
  - MENTAL DISORDER [None]
  - CARDIAC ARREST [None]
  - DEEP VEIN THROMBOSIS [None]
